FAERS Safety Report 6011506-6 (Version None)
Quarter: 2008Q4

REPORT INFORMATION
  Report Type: 
  Country: None (occurrence: None)
  Receive Date: 20081218
  Receipt Date: 19980522
  Transmission Date: 20090506
  Serious: Yes (Death, Life-Threatening)
  Sender: FDA-Public Use
  Company Number: US-ROCHE-99732

PATIENT
  Sex: Male
  Weight: 83.9 kg

DRUGS (7)
  1. TASMAR [Suspect]
     Indication: PARKINSON'S DISEASE
     Route: 048
     Dates: end: 19980519
  2. REQUIP [Suspect]
     Indication: PARKINSON'S DISEASE
     Route: 065
     Dates: end: 19980519
  3. ALBUTEROL [Concomitant]
     Indication: ASTHMA
     Dates: end: 19980519
  4. ZAFIRLUKAST [Concomitant]
     Indication: ASTHMA
     Dates: end: 19980519
  5. STEROID [Concomitant]
     Indication: ASTHMA
     Route: 055
     Dates: end: 19980519
  6. LEVODOPA [Concomitant]
     Dates: end: 19980519
  7. ST JOHN'S WORT [Concomitant]
     Dates: end: 19980519

REACTIONS (4)
  - ASTHMA [None]
  - DEATH [None]
  - HYPOTENSION [None]
  - LOSS OF CONSCIOUSNESS [None]
